FAERS Safety Report 8444718-2 (Version None)
Quarter: 2012Q2

REPORT INFORMATION
  Report Type: 
  Country: None (occurrence: None)
  Receive Date: 20120323
  Receipt Date: 20110621
  Transmission Date: 20120825
  Serious: Yes (Other)
  Sender: FDA-Public Use
  Company Number: 163-21880-11063055

PATIENT
  Age: 75 Year
  Sex: Female

DRUGS (9)
  1. PULMICORT (BUDESONIDE) (UNKNOWN) [Concomitant]
  2. ACYCLOVIR (ACICLOVIR) (UNKNOWN) [Concomitant]
  3. ATROVENT (IPRATROPIUM BROMIDE) (UNKNOWN) [Concomitant]
  4. FLUOXETINE [Concomitant]
  5. INSULIN (INSULIN) (UNKNOWN) [Concomitant]
  6. REVLIMID [Suspect]
     Indication: MULTIPLE MYELOMA
     Dosage: 5 MG, 21/28DAYS, PO
     Route: 048
     Dates: start: 20100101, end: 20110501
  7. GABAPENTIN [Concomitant]
  8. ARANESP (DARBEPOETIN ALFA) (UNKNOWN) [Concomitant]
  9. FUROSEMIDE [Concomitant]

REACTIONS (3)
  - MULTIPLE MYELOMA [None]
  - DIARRHOEA [None]
  - PANCYTOPENIA [None]
